FAERS Safety Report 18349434 (Version 1)
Quarter: 2020Q4

REPORT INFORMATION
  Report Type: Spontaneous
  Country: GB (occurrence: GB)
  Receive Date: 20201006
  Receipt Date: 20201006
  Transmission Date: 20210114
  Serious: Yes (Other)
  Sender: FDA-Public Use
  Company Number: GB-MYLANLABS-2020M1083378

PATIENT
  Age: 34 Year
  Sex: Male
  Weight: 76.5 kg

DRUGS (6)
  1. TRAMADOL. [Concomitant]
     Active Substance: TRAMADOL
     Dosage: 50 MILLIGRAM(1-2 FOUR TIMES A DAY WHEN REQUIRED)
     Dates: start: 20200624
  2. COCODAMOL [Concomitant]
     Active Substance: ACETAMINOPHEN\CODEINE PHOSPHATE
     Dosage: UNK(30/500MG . 1-2 UP TO FOUR TIMES DAILY)
     Dates: start: 20200624
  3. DERMOL                             /01330701/ [Concomitant]
     Dosage: 3 DOSAGE FORM, QD
     Dates: start: 20200908
  4. NAPROXEN. [Suspect]
     Active Substance: NAPROXEN
     Indication: NECK PAIN
     Dosage: 500 MILLIGRAM
     Route: 048
  5. AMITRIPTYLINE [Concomitant]
     Active Substance: AMITRIPTYLINE
     Dosage: 10 MILLIGRAM(ONE TO TWO AT NIGHT)
     Dates: start: 20200624
  6. OMEPRAZOLE. [Concomitant]
     Active Substance: OMEPRAZOLE
     Dosage: 20 MILLIGRAM, QD
     Dates: start: 20200624

REACTIONS (2)
  - Photodermatosis [Unknown]
  - Pseudoporphyria [Unknown]

NARRATIVE: CASE EVENT DATE: 20200710
